FAERS Safety Report 18159685 (Version 1)
Quarter: 2020Q3

REPORT INFORMATION
  Report Type: Spontaneous
  Country: US (occurrence: US)
  Receive Date: 20200817
  Receipt Date: 20200817
  Transmission Date: 20201103
  Serious: Yes (Other)
  Sender: FDA-Public Use
  Company Number: US-BAYER-2020-165802

PATIENT
  Age: 69 Year
  Sex: Female

DRUGS (2)
  1. MILK OF MAGNESIA CHERRY [Suspect]
     Active Substance: MAGNESIUM HYDROXIDE
     Indication: GASTROINTESTINAL DISORDER
     Dosage: LABEL DIRECTIONS DOSE
     Route: 048
     Dates: start: 20200708
  2. CENTRUM A TO ZINC [Concomitant]
     Active Substance: MINERALS\VITAMINS

REACTIONS (1)
  - Blood glucose increased [Unknown]
